FAERS Safety Report 4383061-8 (Version None)
Quarter: 2004Q2

REPORT INFORMATION
  Report Type: 
  Country: None (occurrence: None)
  Receive Date: 20040610
  Receipt Date: 20040413
  Transmission Date: 20050107
  Serious: No
  Sender: FDA-Public Use
  Company Number: US-JNJFOC-20040402556

PATIENT
  Age: 73 Year
  Sex: Male
  Weight: 90.9008 kg

DRUGS (8)
  1. NATRECOR [Suspect]
     Indication: CARDIAC FAILURE CONGESTIVE
     Dosage: 2 UG/KG, INTRAVENOUS
     Route: 042
     Dates: start: 20021201
  2. NATRECOR [Suspect]
     Dosage: 0.01 UG/KG/MIN, INTRAVENOUS
     Route: 042
     Dates: start: 20021201
  3. LASIX [Concomitant]
  4. COREG [Concomitant]
  5. ASPIRIN [Concomitant]
  6. PLAVIX [Concomitant]
  7. K-DUR 10 [Concomitant]
  8. COUMADIN [Concomitant]

REACTIONS (1)
  - CHILLS [None]
